FAERS Safety Report 21452630 (Version 1)
Quarter: 2022Q4

REPORT INFORMATION
  Report Type: Spontaneous
  Country: US (occurrence: None)
  Receive Date: 20221012
  Receipt Date: 20221012
  Transmission Date: 20230113
  Serious: Yes (Hospitalization)
  Sender: FDA-Public Use
  Company Number: None

PATIENT
  Age: 61 Year
  Sex: Male
  Weight: 63.96 kg

DRUGS (15)
  1. CYCLOPHOSPHAMIDE [Suspect]
     Active Substance: CYCLOPHOSPHAMIDE
     Indication: Amyloidosis
     Dosage: FREQUENCY : WEEKLY;?
     Route: 048
     Dates: start: 202209
  2. AMLODIPINE [Concomitant]
  3. CARVEDILOL [Concomitant]
     Active Substance: CARVEDILOL
  4. DEPAKOTE ER [Concomitant]
  5. HEMADY [Concomitant]
  6. KETOCONAZOLE [Concomitant]
  7. LASIX [Concomitant]
  8. LEVOTHYROXINE [Concomitant]
  9. PANTOPRAZOLE [Concomitant]
  10. REQUIP [Concomitant]
     Active Substance: ROPINIROLE HYDROCHLORIDE
  11. ROSUVASTATIN [Concomitant]
  12. SEROQUEL [Concomitant]
  13. TAMSULOSIN [Concomitant]
  14. TRAMADOL [Concomitant]
  15. VALACYCLOVIR [Concomitant]

REACTIONS (2)
  - Abdominal pain [None]
  - Vomiting [None]

NARRATIVE: CASE EVENT DATE: 20221011
